FAERS Safety Report 5922503-0 (Version None)
Quarter: 2008Q4

REPORT INFORMATION
  Report Type: 
  Country: None (occurrence: None)
  Receive Date: 20081017
  Receipt Date: 20081007
  Transmission Date: 20090506
  Serious: Yes (Other)
  Sender: FDA-Public Use
  Company Number: PHHY2008BE23935

PATIENT
  Sex: Female

DRUGS (5)
  1. TASIGNA [Suspect]
     Indication: CHRONIC MYELOID LEUKAEMIA
     Dosage: UNK
     Dates: end: 20070122
  2. TASIGNA [Suspect]
     Dosage: 400 MG/DAY
     Dates: start: 20070815, end: 20070901
  3. TASIGNA [Suspect]
     Dosage: 400MG/DAY
     Dates: start: 20071120, end: 20080101
  4. TASIGNA [Suspect]
     Dosage: 400MG/DAY
     Dates: end: 20080401
  5. TASIGNA [Suspect]
     Dosage: 400MG/DAY
     Dates: start: 20080401, end: 20080601

REACTIONS (5)
  - ARTHRITIS [None]
  - BONE MARROW FAILURE [None]
  - BREAST CANCER [None]
  - DISEASE PROGRESSION [None]
  - THROMBOCYTOPENIA [None]
